FAERS Safety Report 7055876-9 (Version None)
Quarter: 2010Q4

REPORT INFORMATION
  Report Type: 
  Country: None (occurrence: None)
  Receive Date: 20101021
  Receipt Date: 20101013
  Transmission Date: 20110411
  Serious: Yes (Life-Threatening, Hospitalization)
  Sender: FDA-Public Use
  Company Number: JP-WYE-H17619310

PATIENT
  Sex: Female

DRUGS (7)
  1. ZOSYN [Suspect]
     Indication: DIFFUSE PANBRONCHIOLITIS
     Route: 041
     Dates: start: 20100831, end: 20100912
  2. ZOSYN [Suspect]
     Route: 041
     Dates: start: 20100913, end: 20100913
  3. LOXONIN [Suspect]
     Indication: PYREXIA
     Dosage: AS NEEDED
     Route: 048
     Dates: start: 20070101, end: 20100912
  4. LOXONIN [Suspect]
     Route: 048
     Dates: start: 20100913, end: 20100913
  5. ADVAIR DISKUS 100/50 [Concomitant]
     Indication: ASTHMA
     Route: 055
     Dates: start: 20070101, end: 20100913
  6. CLARITHROMYCIN [Concomitant]
     Indication: DIFFUSE PANBRONCHIOLITIS
     Route: 048
     Dates: start: 20070101, end: 20100913
  7. MUCODYNE [Concomitant]
     Indication: DIFFUSE PANBRONCHIOLITIS
     Route: 048
     Dates: start: 20070101, end: 20100913

REACTIONS (8)
  - AGRANULOCYTOSIS [None]
  - ALANINE AMINOTRANSFERASE INCREASED [None]
  - ASPARTATE AMINOTRANSFERASE INCREASED [None]
  - DISEASE PROGRESSION [None]
  - DISSEMINATED INTRAVASCULAR COAGULATION [None]
  - FEBRILE NEUTROPENIA [None]
  - GAMMA-GLUTAMYLTRANSFERASE INCREASED [None]
  - LIVER DISORDER [None]
